FAERS Safety Report 5929095-0 (Version None)
Quarter: 2008Q4

REPORT INFORMATION
  Report Type: 
  Country: None (occurrence: None)
  Receive Date: 20081024
  Receipt Date: 20081023
  Transmission Date: 20090506
  Serious: Yes (Life-Threatening, Other)
  Sender: FDA-Public Use
  Company Number: BR-JNJFOC-20081004097

PATIENT
  Sex: Male
  Weight: 46.6 kg

DRUGS (4)
  1. REMICADE [Suspect]
     Dosage: 6 INFUSIONS ON UNKNOWN DATES
     Route: 042
  2. REMICADE [Suspect]
     Indication: ANKYLOSING SPONDYLITIS
     Route: 042
  3. FOLIC ACID [Concomitant]
     Route: 048
  4. DICLOFENAC [Concomitant]
     Route: 048

REACTIONS (2)
  - MENINGITIS TUBERCULOUS [None]
  - PULMONARY TUBERCULOSIS [None]
